FAERS Safety Report 20951146 (Version 1)
Quarter: 2022Q2

REPORT INFORMATION
  Report Type: Spontaneous
  Country: JP (occurrence: JP)
  Receive Date: 20220613
  Receipt Date: 20220613
  Transmission Date: 20220721
  Serious: Yes (Other)
  Sender: FDA-Public Use
  Company Number: JP-PFIZER INC-202200778871

PATIENT
  Age: 2 Month
  Sex: Male
  Weight: 4.56 kg

DRUGS (7)
  1. VORICONAZOLE [Suspect]
     Active Substance: VORICONAZOLE
     Dosage: 14 MG/KG, DAILY
     Route: 048
  2. VORICONAZOLE [Suspect]
     Active Substance: VORICONAZOLE
     Dosage: 16 MG/KG, DAILY
     Route: 048
  3. VORICONAZOLE [Suspect]
     Active Substance: VORICONAZOLE
     Dosage: 20 MG/KG, DAILY
     Route: 048
  4. VORICONAZOLE [Suspect]
     Active Substance: VORICONAZOLE
     Dosage: 24 MG/KG, DAILY
     Route: 048
  5. VORICONAZOLE [Suspect]
     Active Substance: VORICONAZOLE
     Dosage: 32 MG/KG, DAILY
     Route: 048
  6. CEFAZOLIN [Concomitant]
     Active Substance: CEFAZOLIN
  7. MICAFUNGIN [Concomitant]
     Active Substance: MICAFUNGIN
     Route: 042

REACTIONS (2)
  - Drug level decreased [Recovered/Resolved]
  - Off label use [Unknown]
